FAERS Safety Report 9254856 (Version 1)
Quarter: 2013Q2

REPORT INFORMATION
  Report Type: Report from Study
  Country: US (occurrence: US)
  Receive Date: 20130425
  Receipt Date: 20130425
  Transmission Date: 20140414
  Serious: Yes (Hospitalization)
  Sender: FDA-Public Use
  Company Number: US-PFIZER INC-2013127211

PATIENT
  Age: 80 Year
  Sex: Male

DRUGS (7)
  1. REVATIO [Suspect]
     Indication: PULMONARY HYPERTENSION
     Dosage: 20 MG, THREE TIMES DAILY (TID)
     Route: 048
     Dates: start: 201302, end: 20130307
  2. PIRFENIDONE [Suspect]
     Dosage: AN ESCALATED DOSE FOLLOWED BY FULL MAINTENANCE DOSE OF NINE CAPSULES DAILY (QO)
     Dates: start: 20080917
  3. MICARDIS [Concomitant]
  4. PRAVASTATIN [Concomitant]
  5. ACETYLSALICYLIC ACID [Concomitant]
  6. NEXIUM [Concomitant]
  7. TUSSICAPS [Concomitant]

REACTIONS (1)
  - Acute respiratory failure [Recovered/Resolved with Sequelae]
